FAERS Safety Report 8532687-6 (Version None)
Quarter: 2012Q3

REPORT INFORMATION
  Report Type: 
  Country: None (occurrence: None)
  Receive Date: 20120724
  Receipt Date: 20120718
  Transmission Date: 20120928
  Serious: Yes (Other)
  Sender: FDA-Public Use
  Company Number: PHHY2012BR053537

PATIENT
  Sex: Male

DRUGS (1)
  1. TEGRETOL [Suspect]
     Indication: MENTAL RETARDATION
     Dosage: 1 DF, DAILY
     Route: 048

REACTIONS (1)
  - HEPATIC STEATOSIS [None]
